FAERS Safety Report 11274485 (Version 2)
Quarter: 2015Q3

REPORT INFORMATION
  Report Type: Report from Study
  Country: US (occurrence: US)
  Receive Date: 20150715
  Receipt Date: 20150724
  Transmission Date: 20151125
  Serious: Yes (Hospitalization, Other)
  Sender: FDA-Public Use
  Company Number: US-BRISTOL-MYERS SQUIBB COMPANY-BMS-2015-041522

PATIENT
  Age: 74 Year
  Sex: Male

DRUGS (4)
  1. LASIX [Concomitant]
     Active Substance: FUROSEMIDE
     Indication: PRODUCT USED FOR UNKNOWN INDICATION
     Route: 065
  2. NIVOLUMAB [Suspect]
     Active Substance: NIVOLUMAB
     Indication: DIFFUSE LARGE B-CELL LYMPHOMA
     Dosage: 3 MG/KG, UNK
     Route: 042
     Dates: start: 20150603
  3. LIRILUMAB [Suspect]
     Active Substance: LIRILUMAB
     Indication: DIFFUSE LARGE B-CELL LYMPHOMA
     Dosage: 3 MG/KG, UNK
     Route: 042
     Dates: start: 20150603
  4. LOVENOX [Concomitant]
     Active Substance: ENOXAPARIN SODIUM
     Indication: PRODUCT USED FOR UNKNOWN INDICATION
     Route: 065

REACTIONS (2)
  - Renal failure [Recovered/Resolved with Sequelae]
  - Platelet count decreased [Recovered/Resolved with Sequelae]

NARRATIVE: CASE EVENT DATE: 20150617
